FAERS Safety Report 4626618-9 (Version None)
Quarter: 2005Q1

REPORT INFORMATION
  Report Type: 
  Country: None (occurrence: None)
  Receive Date: 20050330
  Receipt Date: 20050316
  Transmission Date: 20050727
  Serious: Yes (Hospitalization)
  Sender: FDA-Public Use
  Company Number: 200416173BCC

PATIENT
  Age: 59 Year
  Sex: Female
  Weight: 68.0396 kg

DRUGS (3)
  1. ALEVE [Suspect]
     Dosage: 440 MG, QD, ORAL
     Route: 048
     Dates: start: 19990101
  2. ADVIL [Concomitant]
  3. THYROID MEDICATION NOS [Concomitant]

REACTIONS (14)
  - ANXIETY [None]
  - BLOOD GLUCOSE INCREASED [None]
  - BLOOD PRESSURE INCREASED [None]
  - CEREBRAL INFARCTION [None]
  - CEREBROVASCULAR ACCIDENT [None]
  - FACE INJURY [None]
  - FALL [None]
  - HEART RATE INCREASED [None]
  - HYPERTENSION [None]
  - HYPOTHYROIDISM [None]
  - RESPIRATORY RATE INCREASED [None]
  - STRESS [None]
  - TACHYCARDIA [None]
  - THROMBOSIS [None]
